FAERS Safety Report 9148281 (Version 1)
Quarter: 2013Q1

REPORT INFORMATION
  Report Type: Spontaneous
  Country: US (occurrence: None)
  Receive Date: 20130228
  Receipt Date: 20130228
  Transmission Date: 20140127
  Serious: Yes (Other)
  Sender: FDA-Public Use
  Company Number: None

PATIENT
  Age: 41 Year
  Sex: Female

DRUGS (3)
  1. LEVOTHYROXINE [Suspect]
     Indication: BASEDOW^S DISEASE
     Dosage: LEVOTHYROXINE 50MCG  ONCE A DAY ORAL
     Route: 048
     Dates: start: 20100809, end: 20101109
  2. ZOLPIDEM [Concomitant]
  3. CLONIDINE [Concomitant]

REACTIONS (1)
  - Alopecia [None]
